FAERS Safety Report 5366339-0 (Version None)
Quarter: 2007Q2

REPORT INFORMATION
  Report Type: 
  Country: None (occurrence: None)
  Receive Date: 20070620
  Receipt Date: 20070620
  Transmission Date: 20071010
  Serious: No
  Sender: FDA-Public Use
  Company Number: None

PATIENT
  Age: 38 Year
  Sex: Female

DRUGS (3)
  1. GABAPENTIN [Suspect]
     Indication: NEURALGIA
     Dosage: PO
     Route: 048
     Dates: start: 20070611, end: 20070616
  2. GABAPENTIN [Suspect]
     Indication: PAIN IN EXTREMITY
     Dosage: PO
     Route: 048
     Dates: start: 20070611, end: 20070616
  3. GABAPENTIN [Suspect]
     Indication: PROCEDURAL PAIN
     Dosage: PO
     Route: 048
     Dates: start: 20070611, end: 20070616

REACTIONS (2)
  - DIZZINESS [None]
  - TINNITUS [None]
